FAERS Safety Report 23294286 (Version 1)
Quarter: 2023Q4

REPORT INFORMATION
  Report Type: Spontaneous
  Country: None (occurrence: US)
  Receive Date: 20231213
  Receipt Date: 20231213
  Transmission Date: 20240109
  Serious: No
  Sender: FDA-Public Use
  Company Number: US-Harrow Eye-2149320

PATIENT
  Sex: Male

DRUGS (7)
  1. CIPROFLOXACIN [Suspect]
     Active Substance: CIPROFLOXACIN
     Indication: Product used for unknown indication
  2. TOBRAMYCIN [Suspect]
     Active Substance: TOBRAMYCIN
  3. CLARITHROMYCIN [Suspect]
     Active Substance: CLARITHROMYCIN
  4. MOXIFLOXACIN [Suspect]
     Active Substance: MOXIFLOXACIN
  5. LINEZOLID [Suspect]
     Active Substance: LINEZOLID
  6. AZITHROMYCIN [Suspect]
     Active Substance: AZITHROMYCIN
  7. CLOFAZIMINE [Suspect]
     Active Substance: CLOFAZIMINE

REACTIONS (1)
  - Productive cough [Unknown]
